FAERS Safety Report 13913959 (Version 2)
Quarter: 2017Q3

REPORT INFORMATION
  Report Type: Spontaneous
  Country: US (occurrence: US)
  Receive Date: 20170829
  Receipt Date: 20170831
  Transmission Date: 20171127
  Serious: No
  Sender: FDA-Public Use
  Company Number: US-PFIZER INC-2017368259

PATIENT
  Age: 73 Year
  Sex: Female

DRUGS (2)
  1. ENBREL [Suspect]
     Active Substance: ETANERCEPT
     Dosage: UNK
     Dates: start: 2014
  2. METHOTREXATE SODIUM. [Suspect]
     Active Substance: METHOTREXATE SODIUM
     Dosage: UNK
     Dates: start: 2014

REACTIONS (12)
  - Hypoaesthesia [Unknown]
  - Musculoskeletal stiffness [Unknown]
  - Photosensitivity reaction [Unknown]
  - Paraesthesia [Unknown]
  - Myalgia [Unknown]
  - Back pain [Unknown]
  - Dry eye [Unknown]
  - Swelling [Unknown]
  - Tenderness [Unknown]
  - Dyspnoea [Unknown]
  - Arthralgia [Unknown]
  - Ocular hyperaemia [Unknown]
